FAERS Safety Report 21206021 (Version 9)
Quarter: 2023Q4

REPORT INFORMATION
  Report Type: Spontaneous
  Country: US (occurrence: US)
  Receive Date: 20220812
  Receipt Date: 20231122
  Transmission Date: 20240109
  Serious: Yes (Hospitalization, Other)
  Sender: FDA-Public Use
  Company Number: US-SUNOVION-2022SUN002422

PATIENT

DRUGS (3)
  1. LONHALA MAGNAIR [Suspect]
     Active Substance: GLYCOPYRROLATE
     Dosage: 25 ?G, QD
     Route: 055
     Dates: start: 2021
  2. ULIPRISTAL ACETATE [Suspect]
     Active Substance: ULIPRISTAL ACETATE
     Dosage: UNK
     Route: 065
  3. SPIRIVA [Suspect]
     Active Substance: TIOTROPIUM BROMIDE MONOHYDRATE
     Dosage: UNK
     Route: 065

REACTIONS (13)
  - Pneumonia [Unknown]
  - Immune system disorder [Unknown]
  - Sleep disorder [Unknown]
  - Vaccination failure [Unknown]
  - Neck pain [Unknown]
  - Hypoacusis [Unknown]
  - Strabismus [Unknown]
  - Ear pain [Unknown]
  - Epistaxis [Unknown]
  - Visual impairment [Unknown]
  - Hypersensitivity [Unknown]
  - Headache [Unknown]
  - Inappropriate schedule of product administration [Unknown]

NARRATIVE: CASE EVENT DATE: 20220101
